FAERS Safety Report 5133246-8 (Version None)
Quarter: 2006Q4

REPORT INFORMATION
  Report Type: 
  Country: None (occurrence: None)
  Receive Date: 20061018
  Receipt Date: 20061005
  Transmission Date: 20070319
  Serious: Yes (Hospitalization)
  Sender: FDA-Public Use
  Company Number: 2006107491

PATIENT
  Age: 58 Year
  Sex: Male
  Weight: 70.1 kg

DRUGS (8)
  1. SUTENT [Suspect]
     Indication: RENAL CELL CARCINOMA STAGE UNSPECIFIED
     Dosage: 50 MG (50 MG, 1 IN 1 D), ORAL
     Route: 048
     Dates: start: 20060328, end: 20060412
  2. CANDESARTAN CILEXETIL [Concomitant]
  3. REBAMIPIDE [Concomitant]
  4. MAGNESIUM OXIDE [Concomitant]
  5. RANITIDINE HYDROCHLORIDE [Concomitant]
  6. POSTERISAN FORTE (ESCHERICIA COLI, LYOPHILIZED, HYDROCORTISONE, LANOLI [Concomitant]
  7. LOXOPROFEN SODIUM [Concomitant]
  8. TRIAMCINOLONE ACETONIDE [Concomitant]

REACTIONS (15)
  - ANAEMIA [None]
  - ANAL ULCER [None]
  - APHAGIA [None]
  - BACTERIAL INFECTION [None]
  - DRUG TOXICITY [None]
  - GENERAL PHYSICAL HEALTH DETERIORATION [None]
  - HAEMOGLOBIN DECREASED [None]
  - INFECTED SKIN ULCER [None]
  - MALAISE [None]
  - NAUSEA [None]
  - PERIPROCTITIS [None]
  - PYREXIA [None]
  - SKIN TOXICITY [None]
  - UPPER GASTROINTESTINAL HAEMORRHAGE [None]
  - VOMITING [None]
